FAERS Safety Report 25860218 (Version 1)
Quarter: 2025Q3

REPORT INFORMATION
  Report Type: Spontaneous
  Country: US (occurrence: US)
  Receive Date: 20250929
  Receipt Date: 20250929
  Transmission Date: 20251021
  Serious: No
  Sender: PRASCO
  Company Number: US-Prasco Laboratories-PRAS20250350

PATIENT
  Age: 66 Year
  Sex: Female

DRUGS (3)
  1. ESTRADIOL [Suspect]
     Active Substance: ESTRADIOL
     Indication: Hormone replacement therapy
     Dosage: 0.5 GRAMS EVERY MONDAY, WEDNESDAY, AND FRIDAY
     Route: 067
     Dates: start: 2025
  2. ESTRADIOL [Suspect]
     Active Substance: ESTRADIOL
     Dosage: 0.5 GRAMS EVERY NIGHT FOR TWO WEEKS
     Route: 067
  3. CLOTRIMAZOLE [Concomitant]
     Active Substance: CLOTRIMAZOLE
     Indication: Fungal infection
     Route: 065

REACTIONS (6)
  - Bacterial vulvovaginitis [Recovered/Resolved]
  - Vulvovaginal pruritus [Not Recovered/Not Resolved]
  - Off label use [Unknown]
  - Product residue present [Unknown]
  - Wrong technique in product usage process [Unknown]
  - Product use complaint [Unknown]

NARRATIVE: CASE EVENT DATE: 20250101
